FAERS Safety Report 25194841 (Version 2)
Quarter: 2025Q2

REPORT INFORMATION
  Report Type: Report from Study
  Country: US (occurrence: US)
  Receive Date: 20250414
  Receipt Date: 20250513
  Transmission Date: 20250717
  Serious: Yes (Other)
  Sender: ABBVIE
  Company Number: US-ABBVIE-6228076

PATIENT
  Sex: Male

DRUGS (1)
  1. VENCLEXTA [Suspect]
     Active Substance: VENETOCLAX
     Indication: Acute myeloid leukaemia
     Route: 048
     Dates: start: 202211

REACTIONS (7)
  - Hernia [Unknown]
  - Nasopharyngitis [Unknown]
  - Sinus disorder [Unknown]
  - Seasonal allergy [Unknown]
  - Myalgia [Unknown]
  - Asthenia [Unknown]
  - Loss of personal independence in daily activities [Unknown]
